FAERS Safety Report 8232472-9 (Version None)
Quarter: 2012Q1

REPORT INFORMATION
  Report Type: 
  Country: None (occurrence: None)
  Receive Date: 20120320
  Receipt Date: 20120312
  Transmission Date: 20120608
  Serious: Yes (Hospitalization)
  Sender: FDA-Public Use
  Company Number: WAES 1203USA01731

PATIENT
  Age: 64 Year
  Sex: Male

DRUGS (7)
  1. BLINDED THERAPY [Suspect]
     Indication: TYPE 2 DIABETES MELLITUS
     Dosage: UNK
     Dates: start: 20101211, end: 20110402
  2. INJ INSULIN GLARGINE [Suspect]
     Indication: TYPE 2 DIABETES MELLITUS
     Dosage: 80 IU/UNK/SC
     Route: 058
  3. ASPIRIN [Concomitant]
  4. NIACIN [Concomitant]
  5. PRINIVIL [Suspect]
     Indication: PRODUCT USED FOR UNKNOWN INDICATION
     Dosage: PO
     Route: 048
     Dates: start: 20110415
  6. HYDRALAZINE HCL [Suspect]
     Indication: PRODUCT USED FOR UNKNOWN INDICATION
     Dosage: 50; 100 MG, BID, TID, UNK
     Dates: start: 20111001
  7. HYDRALAZINE HCL [Suspect]
     Indication: PRODUCT USED FOR UNKNOWN INDICATION
     Dosage: 50; 100 MG, BID, TID, UNK
     Dates: start: 20111201

REACTIONS (11)
  - DIZZINESS [None]
  - HYPOTENSION [None]
  - BACK PAIN [None]
  - SCIATICA [None]
  - CAROTID ARTERY STENT INSERTION [None]
  - CORONARY ARTERY DISEASE [None]
  - POST PROCEDURAL COMPLICATION [None]
  - CONFUSIONAL STATE [None]
  - MYOCARDIAL INFARCTION [None]
  - CONTRAST MEDIA REACTION [None]
  - RENAL FAILURE ACUTE [None]
